FAERS Safety Report 4395758-4 (Version None)
Quarter: 2004Q3

REPORT INFORMATION
  Report Type: 
  Country: None (occurrence: None)
  Receive Date: 20040707
  Receipt Date: 20040624
  Transmission Date: 20050211
  Serious: Yes (Other)
  Sender: FDA-Public Use
  Company Number: GB-JNJFOC-20040603068

PATIENT
  Age: 10 Year
  Sex: Male
  Weight: 30.6 kg

DRUGS (1)
  1. CONCERTA [Suspect]
     Indication: ATTENTION DEFICIT/HYPERACTIVITY DISORDER
     Dosage: 54 MG, 1 IN 1 DAY; UNKNOWN
     Route: 065
     Dates: start: 20020530

REACTIONS (3)
  - DISEASE RECURRENCE [None]
  - EYE INFECTION [None]
  - HERPES VIRUS INFECTION [None]
